FAERS Safety Report 18508261 (Version 1)
Quarter: 2020Q4

REPORT INFORMATION
  Report Type: Spontaneous
  Country: US (occurrence: US)
  Receive Date: 20201116
  Receipt Date: 20201116
  Transmission Date: 20210114
  Serious: Yes (Life-Threatening, Hospitalization)
  Sender: FDA-Public Use
  Company Number: US-ACELLA PHARMACEUTICALS, LLC-2095961

PATIENT
  Age: 6 Month
  Sex: Male

DRUGS (5)
  1. GABAPENTIN. [Suspect]
     Active Substance: GABAPENTIN
  2. CLONIDINE TRANSDERMAL SYSTEM [Suspect]
     Active Substance: CLONIDINE
  3. METHADONE [Suspect]
     Active Substance: METHADONE HYDROCHLORIDE
  4. MELATONIN [Suspect]
     Active Substance: MELATONIN
  5. LORAZEPAM. [Suspect]
     Active Substance: LORAZEPAM

REACTIONS (2)
  - Respiratory failure [Recovered/Resolved]
  - Delirium [Recovered/Resolved]
